FAERS Safety Report 4557250-3 (Version None)
Quarter: 2005Q1

REPORT INFORMATION
  Report Type: 
  Country: None (occurrence: None)
  Receive Date: 20050120
  Receipt Date: 20040317
  Transmission Date: 20050727
  Serious: Yes (Death)
  Sender: FDA-Public Use
  Company Number: US-AMGEN-KDL068031

PATIENT
  Sex: Male
  Weight: 72.6 kg

DRUGS (18)
  1. DARBEPOETIN ALFA [Suspect]
     Indication: DIALYSIS
     Route: 042
     Dates: start: 20030915, end: 20040225
  2. ACETAMINOPHEN [Concomitant]
     Route: 048
     Dates: start: 20020501
  3. HECTORAL [Concomitant]
     Route: 042
     Dates: start: 20031024
  4. VENOFER [Concomitant]
     Route: 042
     Dates: start: 20030804
  5. VANCOMYCIN HYDROCHLORIDE [Concomitant]
     Route: 042
     Dates: start: 20020622
  6. HYDROCODONE BITARTRATE AND ACETAMINOPHEN [Concomitant]
     Route: 048
     Dates: start: 20040218
  7. ASPIRIN [Concomitant]
     Route: 048
     Dates: start: 19990103
  8. NEPHRO-CAPS [Concomitant]
     Route: 048
     Dates: start: 20030912
  9. BISACODYL [Concomitant]
     Route: 048
     Dates: start: 20030825
  10. CALCIUM ACETATE [Concomitant]
     Route: 048
     Dates: start: 20030127
  11. COLACE [Concomitant]
     Route: 048
     Dates: start: 20020202
  12. ATARAX [Concomitant]
     Route: 048
     Dates: start: 20020425
  13. PROTONIX [Concomitant]
     Route: 048
     Dates: start: 20011023
  14. MIRALAX [Concomitant]
     Route: 048
     Dates: start: 20030917
  15. PRAZOSIN HYDROCHLORIDE [Concomitant]
     Route: 048
     Dates: start: 20040218
  16. RENAGEL [Concomitant]
     Route: 048
     Dates: start: 20020114
  17. SIMETHICONE [Concomitant]
     Route: 048
     Dates: start: 20030917
  18. SORBITOL [Concomitant]
     Route: 048
     Dates: start: 20031006

REACTIONS (5)
  - ARRHYTHMIA [None]
  - ARTERIAL INJURY [None]
  - CORONARY ARTERY OCCLUSION [None]
  - CORONARY ARTERY THROMBOSIS [None]
  - HAEMOGLOBIN DECREASED [None]
